FAERS Safety Report 10635276 (Version 2)
Quarter: 2014Q4

REPORT INFORMATION
  Report Type: Spontaneous
  Country: GB (occurrence: GB)
  Receive Date: 20141205
  Receipt Date: 20141208
  Transmission Date: 20150529
  Serious: Yes (Hospitalization)
  Sender: FDA-Public Use
  Company Number: GB-TEVA-525922ISR

PATIENT
  Age: 32 Year
  Sex: Male

DRUGS (4)
  1. BISOPROLOL [Suspect]
     Active Substance: BISOPROLOL
     Indication: INTENTIONAL OVERDOSE
     Dosage: 200MG
     Route: 048
  2. SIMVASTATIN. [Suspect]
     Active Substance: SIMVASTATIN
     Indication: INTENTIONAL OVERDOSE
     Dosage: 280MG
     Route: 048
  3. DILTIAZEM [Suspect]
     Active Substance: DILTIAZEM
     Indication: INTENTIONAL OVERDOSE
     Dosage: 5040MG
     Route: 048
  4. MIRTAZAPINE. [Concomitant]
     Active Substance: MIRTAZAPINE
     Indication: DEPRESSION
     Route: 065

REACTIONS (13)
  - Anuria [Recovering/Resolving]
  - Bradycardia [Recovered/Resolved]
  - Respiratory acidosis [Recovering/Resolving]
  - Hypoxia [Recovering/Resolving]
  - Rhabdomyolysis [Recovering/Resolving]
  - Intentional overdose [Recovering/Resolving]
  - Atrioventricular block complete [Recovering/Resolving]
  - Hypokalaemia [Recovered/Resolved]
  - Hypothermia [Unknown]
  - Cardiac arrest [Recovering/Resolving]
  - Hypotension [Recovered/Resolved]
  - Myopathy [Recovering/Resolving]
  - Metabolic acidosis [Recovering/Resolving]
